FAERS Safety Report 9714197 (Version 1)
Quarter: 2013Q4

REPORT INFORMATION
  Report Type: Spontaneous
  Country: US (occurrence: US)
  Receive Date: 20131126
  Receipt Date: 20131126
  Transmission Date: 20140711
  Serious: No
  Sender: FDA-Public Use
  Company Number: US-GILEAD-2008-0019271

PATIENT
  Sex: Female
  Weight: 117.93 kg

DRUGS (13)
  1. LETAIRIS [Suspect]
     Indication: PULMONARY ARTERIAL HYPERTENSION
     Route: 048
     Dates: start: 20081113
  2. REVATIO [Concomitant]
  3. OXYGEN [Concomitant]
  4. LASIX [Concomitant]
  5. ADVAIR 250-50 [Concomitant]
  6. PROAIR HFA [Concomitant]
  7. ALEVE [Concomitant]
  8. LEVOXYL [Concomitant]
  9. VITAMIN E [Concomitant]
  10. CALCIUM [Concomitant]
  11. MULTIVITAMIN [Concomitant]
  12. COQ10 [Concomitant]
  13. FISH OIL [Concomitant]

REACTIONS (2)
  - Gait disturbance [None]
  - Oedema peripheral [None]
